FAERS Safety Report 4509984-4 (Version None)
Quarter: 2004Q4

REPORT INFORMATION
  Report Type: 
  Country: None (occurrence: None)
  Receive Date: 20041124
  Receipt Date: 20041116
  Transmission Date: 20050328
  Serious: Yes (Hospitalization)
  Sender: FDA-Public Use
  Company Number: FR-ABBOTT-04P-056-0281014-00

PATIENT
  Age: 34 Year
  Sex: Female
  Weight: 53 kg

DRUGS (9)
  1. NORVIR [Suspect]
     Indication: HIV INFECTION
     Route: 048
     Dates: start: 20040401
  2. VINBLASTINE SULFATE [Interacting]
     Indication: HODGKIN'S DISEASE
     Route: 042
     Dates: start: 20040911, end: 20040911
  3. ATAZANAVIR [Suspect]
     Indication: HIV INFECTION
     Route: 048
     Dates: start: 20040401
  4. DOXORUBICIN [Suspect]
     Indication: HODGKIN'S DISEASE
     Route: 042
     Dates: start: 20040911
  5. TENOFOVIR [Suspect]
     Indication: HIV INFECTION
     Route: 048
     Dates: start: 20040401
  6. EMTRICITABINE [Suspect]
     Indication: HIV INFECTION
     Route: 048
     Dates: start: 20040401
  7. BLEOMYCIN [Suspect]
     Indication: HODGKIN'S DISEASE
     Route: 042
     Dates: start: 20040911
  8. DACARBAZINE [Suspect]
     Indication: HODGKIN'S DISEASE
     Route: 042
     Dates: start: 20040911
  9. ETOPOSIDE [Concomitant]
     Indication: HODGKIN'S DISEASE
     Route: 042
     Dates: start: 20040927, end: 20040927

REACTIONS (10)
  - AGRANULOCYTOSIS [None]
  - BLOOD BILIRUBIN INCREASED [None]
  - DRUG INTERACTION [None]
  - HYPONATRAEMIA [None]
  - ILEUS PARALYTIC [None]
  - INTESTINAL OBSTRUCTION [None]
  - LEUKOPENIA [None]
  - OVERDOSE [None]
  - PYREXIA [None]
  - UNEVALUABLE EVENT [None]
